FAERS Safety Report 14225218 (Version 1)
Quarter: 2017Q4

REPORT INFORMATION
  Report Type: Spontaneous
  Country: US (occurrence: US)
  Receive Date: 20171127
  Receipt Date: 20171127
  Transmission Date: 20180321
  Serious: Yes (Other)
  Sender: FDA-Public Use
  Company Number: PHHY2017US171757

PATIENT
  Age: 59 Year
  Sex: Female

DRUGS (1)
  1. METHADONE [Suspect]
     Active Substance: METHADONE HYDROCHLORIDE
     Indication: PRODUCT USED FOR UNKNOWN INDICATION
     Dosage: UNK
     Route: 065

REACTIONS (8)
  - Hyperreflexia [Unknown]
  - Headache [Unknown]
  - Blindness [Unknown]
  - Toxicity to various agents [Unknown]
  - Mental status changes [Recovering/Resolving]
  - Leukoencephalopathy [Unknown]
  - Seizure [Unknown]
  - Muscle rigidity [Unknown]
